FAERS Safety Report 14020410 (Version 6)
Quarter: 2019Q1

REPORT INFORMATION
  Report Type: Report from Study
  Country: JP (occurrence: JP)
  Receive Date: 20170928
  Receipt Date: 20190212
  Transmission Date: 20190417
  Serious: Yes (Death, Hospitalization, Other)
  Sender: FDA-Public Use
  Company Number: JP-INCYTE CORPORATION-2017IN008060

PATIENT

DRUGS (42)
  1. JAKAVI [Suspect]
     Active Substance: RUXOLITINIB
     Dosage: 10 MG, BID
     Route: 048
     Dates: start: 20141117, end: 20141121
  2. JAKAVI [Suspect]
     Active Substance: RUXOLITINIB
     Dosage: 10 MG, BID
     Route: 048
     Dates: start: 20141201, end: 20141207
  3. CYLOCIDE [Suspect]
     Active Substance: CYTARABINE
     Indication: PRODUCT USED FOR UNKNOWN INDICATION
     Dosage: 24 MG, QD
     Route: 065
     Dates: start: 20151030, end: 20151112
  4. IRRADIATED RED BLOOD CELLS-LEUKOCYTES REDUCED [Concomitant]
     Active Substance: HUMAN RED BLOOD CELL
     Dosage: 2 IU, QD
     Route: 065
     Dates: start: 20150402, end: 20150402
  5. HYDREA [Concomitant]
     Active Substance: HYDROXYUREA
     Dosage: 500 MG, Q12H
     Route: 048
     Dates: start: 20150806, end: 20150826
  6. HYDREA [Concomitant]
     Active Substance: HYDROXYUREA
     Dosage: 750 MG, QD
     Route: 048
     Dates: start: 20150827, end: 20150831
  7. ACLACINON [Suspect]
     Active Substance: ACLARUBICIN HYDROCHLORIDE
     Indication: CHRONIC MYELOMONOCYTIC LEUKAEMIA
     Dosage: 20 MG, QD
     Route: 041
     Dates: start: 20141017, end: 20141020
  8. IRRADIATED RED BLOOD CELLS-LEUKOCYTES REDUCED [Concomitant]
     Active Substance: HUMAN RED BLOOD CELL
     Dosage: 2 IU, QD
     Route: 065
     Dates: start: 20150806, end: 20150806
  9. IRRADIATED RED BLOOD CELLS-LEUKOCYTES REDUCED [Concomitant]
     Active Substance: HUMAN RED BLOOD CELL
     Dosage: 2 IU, QD
     Route: 065
     Dates: start: 20150901, end: 20150901
  10. IRRADIATED RED BLOOD CELLS-LEUKOCYTES REDUCED [Concomitant]
     Active Substance: HUMAN RED BLOOD CELL
     Dosage: 2 IU, QD
     Route: 065
     Dates: start: 20151015, end: 20151015
  11. JAKAVI [Suspect]
     Active Substance: RUXOLITINIB
     Dosage: 20 MG, BID
     Route: 048
     Dates: start: 20150122, end: 20150218
  12. IRRADIATED RED BLOOD CELLS-LEUKOCYTES REDUCED [Concomitant]
     Active Substance: HUMAN RED BLOOD CELL
     Dosage: 2 IU, QD
     Route: 065
     Dates: start: 20150827, end: 20150827
  13. HYDREA [Concomitant]
     Active Substance: HYDROXYUREA
     Dosage: 500 MG, QD
     Route: 048
     Dates: start: 20150901, end: 20150907
  14. HYDREA [Concomitant]
     Active Substance: HYDROXYUREA
     Dosage: 250 MG, QD
     Route: 048
     Dates: start: 20150908, end: 20150920
  15. JAKAVI [Suspect]
     Active Substance: RUXOLITINIB
     Dosage: 25 MG, BID
     Route: 048
     Dates: start: 20150730, end: 20150920
  16. CYTARABINE. [Suspect]
     Active Substance: CYTARABINE
     Indication: SEPSIS
     Dosage: 262 MG, QD
     Route: 065
     Dates: start: 20150920, end: 20150920
  17. IRRADIATED RED BLOOD CELLS-LEUKOCYTES REDUCED [Concomitant]
     Active Substance: HUMAN RED BLOOD CELL
     Dosage: 2 IU, QD
     Route: 065
     Dates: start: 20150910, end: 20150910
  18. HYDREA [Concomitant]
     Active Substance: HYDROXYUREA
     Dosage: 500 MG, QD
     Route: 048
     Dates: start: 20150721, end: 20150729
  19. HYDREA [Concomitant]
     Active Substance: HYDROXYUREA
     Dosage: 750 MG, QD
     Route: 048
     Dates: start: 20150730, end: 20150805
  20. JAKAVI [Suspect]
     Active Substance: RUXOLITINIB
     Dosage: 5 MG, BID
     Route: 048
     Dates: start: 20141122, end: 20141130
  21. JAKAVI [Suspect]
     Active Substance: RUXOLITINIB
     Dosage: 10 MG, BID
     Route: 048
     Dates: start: 20151009, end: 20151030
  22. CYTARABINE. [Suspect]
     Active Substance: CYTARABINE
     Dosage: 210 MG, QD
     Route: 065
     Dates: start: 20150921, end: 20150924
  23. IRRADIATED RED BLOOD CELLS-LEUKOCYTES REDUCED [Concomitant]
     Active Substance: HUMAN RED BLOOD CELL
     Indication: ACUTE LEUKAEMIA
     Dosage: 2 IU, QD
     Route: 065
     Dates: start: 20141117, end: 20141117
  24. IRRADIATED RED BLOOD CELLS-LEUKOCYTES REDUCED [Concomitant]
     Active Substance: HUMAN RED BLOOD CELL
     Dosage: 2 IU, QD
     Route: 065
     Dates: start: 20150312, end: 20150312
  25. HYDREA [Concomitant]
     Active Substance: HYDROXYUREA
     Indication: MYELOFIBROSIS
     Dosage: 1000 MG, QD
     Route: 048
     Dates: end: 20141117
  26. HYDREA [Concomitant]
     Active Substance: HYDROXYUREA
     Dosage: 1000 MG, QD
     Route: 048
     Dates: start: 20150402, end: 20150404
  27. HYDREA [Concomitant]
     Active Substance: HYDROXYUREA
     Dosage: 1000 MG, QD
     Route: 048
     Dates: start: 20150715, end: 20150720
  28. JAKAVI [Suspect]
     Active Substance: RUXOLITINIB
     Indication: MYELOFIBROSIS
     Dosage: 5 MG, BID
     Route: 048
     Dates: start: 20141114, end: 20141116
  29. JAKAVI [Suspect]
     Active Substance: RUXOLITINIB
     Dosage: 15 MG, BID
     Route: 048
     Dates: start: 20141208, end: 20150121
  30. JAKAVI [Suspect]
     Active Substance: RUXOLITINIB
     Dosage: 10 MG, BID
     Route: 048
     Dates: start: 20150326, end: 20150401
  31. JAKAVI [Suspect]
     Active Substance: RUXOLITINIB
     Dosage: 15 MG, BID
     Route: 048
     Dates: start: 20151123, end: 20151127
  32. ACLACINON [Suspect]
     Active Substance: ACLARUBICIN HYDROCHLORIDE
     Dosage: 21 MG, QD
     Route: 041
     Dates: start: 20150920, end: 20150924
  33. IRRADIATED RED BLOOD CELLS-LEUKOCYTES REDUCED [Concomitant]
     Active Substance: HUMAN RED BLOOD CELL
     Dosage: 2 IU, QD
     Route: 065
     Dates: start: 20150709, end: 20150709
  34. JAKAVI [Suspect]
     Active Substance: RUXOLITINIB
     Dosage: 25 MG, BID
     Route: 048
     Dates: start: 20150219, end: 20150325
  35. IRRADIATED RED BLOOD CELLS-LEUKOCYTES REDUCED [Concomitant]
     Active Substance: HUMAN RED BLOOD CELL
     Dosage: 2 IU, QD
     Route: 065
     Dates: start: 20150326, end: 20150326
  36. IRRADIATED RED BLOOD CELLS-LEUKOCYTES REDUCED [Concomitant]
     Active Substance: HUMAN RED BLOOD CELL
     Dosage: 2 IU, QD
     Route: 065
     Dates: start: 20151013, end: 20151013
  37. HYDREA [Concomitant]
     Active Substance: HYDROXYUREA
     Dosage: 1000 MG, QD
     Route: 048
     Dates: start: 20151028, end: 20151030
  38. JAKAVI [Suspect]
     Active Substance: RUXOLITINIB
     Dosage: 10 MG, BID
     Route: 048
     Dates: start: 20150701, end: 20150729
  39. ACLACINON [Suspect]
     Active Substance: ACLARUBICIN HYDROCHLORIDE
     Dosage: 12 MG, QD
     Route: 041
     Dates: start: 20151030, end: 20151102
  40. IRRADIATED RED BLOOD CELLS-LEUKOCYTES REDUCED [Concomitant]
     Active Substance: HUMAN RED BLOOD CELL
     Indication: MYELOFIBROSIS
     Dosage: 2 IU, QD
     Route: 065
     Dates: start: 20141125, end: 20141125
  41. IRRADIATED RED BLOOD CELLS-LEUKOCYTES REDUCED [Concomitant]
     Active Substance: HUMAN RED BLOOD CELL
     Dosage: 2 IU, QD
     Route: 065
     Dates: start: 20141203, end: 20141203
  42. IRRADIATED RED BLOOD CELLS-LEUKOCYTES REDUCED [Concomitant]
     Active Substance: HUMAN RED BLOOD CELL
     Dosage: 2 IU, QD
     Route: 065
     Dates: start: 20141217, end: 20141217

REACTIONS (10)
  - Haemoglobin decreased [Unknown]
  - Acute leukaemia [Recovering/Resolving]
  - Myelodysplastic syndrome [Fatal]
  - Sepsis [Recovering/Resolving]
  - Chronic myeloid leukaemia [Fatal]
  - Conjunctival haemorrhage [Recovering/Resolving]
  - Febrile neutropenia [Recovering/Resolving]
  - Neutrophil count decreased [Recovering/Resolving]
  - Myeloproliferative neoplasm [Fatal]
  - Platelet count decreased [Not Recovered/Not Resolved]

NARRATIVE: CASE EVENT DATE: 20141121
